FAERS Safety Report 23917691 (Version 1)
Quarter: 2024Q2

REPORT INFORMATION
  Report Type: Spontaneous
  Country: DE (occurrence: DE)
  Receive Date: 20240530
  Receipt Date: 20240530
  Transmission Date: 20240716
  Serious: Yes (Other)
  Sender: FDA-Public Use
  Company Number: DE-BRISTOL-MYERS SQUIBB COMPANY-2024-084943

PATIENT
  Age: 81 Year
  Sex: Male

DRUGS (2)
  1. ELIQUIS [Suspect]
     Active Substance: APIXABAN
     Indication: Atrial fibrillation
     Dates: start: 20210611
  2. TAFAMIDIS [Concomitant]
     Active Substance: TAFAMIDIS
     Indication: Acquired ATTR amyloidosis

REACTIONS (2)
  - Cataract [Not Recovered/Not Resolved]
  - Accident [Unknown]
